FAERS Safety Report 24746965 (Version 1)
Quarter: 2024Q4

REPORT INFORMATION
  Report Type: Spontaneous
  Country: US (occurrence: US)
  Receive Date: 20241218
  Receipt Date: 20241218
  Transmission Date: 20250114
  Serious: Yes (Hospitalization, Other)
  Sender: AMGEN
  Company Number: US-AMGEN-USASP2024244963

PATIENT
  Age: 76 Year
  Sex: Female

DRUGS (2)
  1. REPATHA [Suspect]
     Active Substance: EVOLOCUMAB
     Indication: Blood cholesterol abnormal
     Dosage: 140 MILLIGRAM, Q2WK
     Route: 065
     Dates: start: 202409, end: 20241105
  2. REPATHA [Suspect]
     Active Substance: EVOLOCUMAB
     Indication: Arteriosclerosis

REACTIONS (14)
  - Diarrhoea haemorrhagic [Recovering/Resolving]
  - Pancreatitis [Recovered/Resolved]
  - Asthenia [Recovering/Resolving]
  - Sialoadenitis [Recovering/Resolving]
  - Salivary gland calculus [Recovered/Resolved]
  - Unevaluable event [Unknown]
  - Hepatic enzyme increased [Recovered/Resolved]
  - Insomnia [Recovering/Resolving]
  - Neck pain [Recovering/Resolving]
  - Pain in extremity [Recovered/Resolved]
  - Pain [Recovering/Resolving]
  - Muscle spasms [Recovered/Resolved]
  - Headache [Recovering/Resolving]
  - Nausea [Recovered/Resolved]

NARRATIVE: CASE EVENT DATE: 20240101
